FAERS Safety Report 12078829 (Version 3)
Quarter: 2016Q3

REPORT INFORMATION
  Report Type: Report from Study
  Country: AR (occurrence: AR)
  Receive Date: 20160216
  Receipt Date: 20160916
  Transmission Date: 20161109
  Serious: Yes (Other)
  Sender: FDA-Public Use
  Company Number: PHHY2016AR019669

PATIENT
  Sex: Male

DRUGS (2)
  1. ALLOPURINOL. [Concomitant]
     Active Substance: ALLOPURINOL
     Indication: PRODUCT USED FOR UNKNOWN INDICATION
     Route: 065
  2. DIOVAN [Suspect]
     Active Substance: VALSARTAN
     Indication: HYPERTENSION
     Dosage: 1 DF, QD (80 MG)
     Route: 065

REACTIONS (8)
  - Hypersensitivity [Unknown]
  - Intraocular pressure increased [Unknown]
  - Rhinorrhoea [Recovering/Resolving]
  - Nasopharyngitis [Recovering/Resolving]
  - Sinusitis [Unknown]
  - Nasal polyps [Unknown]
  - Hypoacusis [Recovering/Resolving]
  - Lacrimation increased [Unknown]

NARRATIVE: CASE EVENT DATE: 2015
